FAERS Safety Report 15744627 (Version 1)
Quarter: 2018Q4

REPORT INFORMATION
  Report Type: Spontaneous
  Country: US (occurrence: US)
  Receive Date: 20181205
  Receipt Date: 20181205
  Transmission Date: 20190205
  Serious: Yes (Hospitalization)
  Sender: FDA-Public Use
  Company Number: None

PATIENT
  Age: 19 Year

DRUGS (6)
  1. DAUNORUBICIN [Concomitant]
     Active Substance: DAUNORUBICIN
  2. METHOTREXATE. [Concomitant]
     Active Substance: METHOTREXATE
  3. ONCASPAR [Suspect]
     Active Substance: PEGASPARGASE
  4. VINCRISTINE SULFATE. [Suspect]
     Active Substance: VINCRISTINE SULFATE
  5. CYTARABINE (63878) [Suspect]
     Active Substance: CYTARABINE
  6. PREDNISONE. [Concomitant]
     Active Substance: PREDNISONE

REACTIONS (9)
  - Pyrexia [None]
  - Rectal fissure [None]
  - Tachycardia [None]
  - Blood pressure decreased [None]
  - Ecchymosis [None]
  - Nausea [None]
  - Soft tissue infection [None]
  - Cough [None]
  - General physical health deterioration [None]

NARRATIVE: CASE EVENT DATE: 20181102
